FAERS Safety Report 8284652-4 (Version None)
Quarter: 2012Q2

REPORT INFORMATION
  Report Type: 
  Country: None (occurrence: None)
  Receive Date: 20120413
  Receipt Date: 20110712
  Transmission Date: 20120825
  Serious: Yes (Other)
  Sender: FDA-Public Use
  Company Number: US-ASTRAZENECA-2011SE41848

PATIENT
  Sex: Female

DRUGS (3)
  1. NEXIUM [Suspect]
     Route: 048
  2. PRILOSEC [Suspect]
     Route: 048
  3. PREVACID [Suspect]

REACTIONS (1)
  - HYPOMAGNESAEMIA [None]
